FAERS Safety Report 5320810-6 (Version None)
Quarter: 2007Q2

REPORT INFORMATION
  Report Type: 
  Country: None (occurrence: None)
  Receive Date: 20070502
  Receipt Date: 20070419
  Transmission Date: 20071010
  Serious: Yes (Hospitalization)
  Sender: FDA-Public Use
  Company Number: CERZ-11610

PATIENT
  Age: 65 Year
  Sex: Female
  Weight: 60 kg

DRUGS (1)
  1. CEREZYME [Suspect]
     Indication: GAUCHER'S DISEASE
     Dosage: 2800 UNITS Q2WKS IV
     Route: 042
     Dates: start: 20061101

REACTIONS (5)
  - BLOOD CULTURE POSITIVE [None]
  - CATHETER RELATED INFECTION [None]
  - SEPSIS [None]
  - STAPHYLOCOCCAL INFECTION [None]
  - WRONG TECHNIQUE IN DRUG USAGE PROCESS [None]
